FAERS Safety Report 4691713-5 (Version None)
Quarter: 2005Q2

REPORT INFORMATION
  Report Type: 
  Country: None (occurrence: None)
  Receive Date: 20050616
  Receipt Date: 20050611
  Transmission Date: 20051028
  Serious: Yes (Hospitalization)
  Sender: FDA-Public Use
  Company Number: US-BRISTOL-MYERS SQUIBB COMPANY-13000633

PATIENT
  Age: 55 Year
  Sex: Female
  Weight: 92 kg

DRUGS (3)
  1. CETUXIMAB [Suspect]
     Indication: METASTATIC RENAL CELL CARCINOMA
     Dosage: 400 MG/M2 IV OVER 120 MIN D1/250 MG/M2 IV OVER 60 MIN D8, 15, 22.
     Route: 042
     Dates: start: 20050429, end: 20050429
  2. OSI-774 [Suspect]
     Indication: METASTATIC RENAL CELL CARCINOMA
     Dosage: THE PATIENT ONLY RECEIVED ONE WEEK OF ELOTINIB STUDY THERAPY.
     Route: 048
     Dates: start: 20050505, end: 20050505
  3. COUMADIN [Suspect]
     Indication: DEEP VEIN THROMBOSIS

REACTIONS (3)
  - ANAEMIA [None]
  - HAEMOGLOBIN DECREASED [None]
  - VARICES OESOPHAGEAL [None]
